FAERS Safety Report 22389135 (Version 1)
Quarter: 2023Q2

REPORT INFORMATION
  Report Type: Spontaneous
  Country: US (occurrence: US)
  Receive Date: 20230531
  Receipt Date: 20230531
  Transmission Date: 20230722
  Serious: Yes (Hospitalization)
  Sender: FDA-Public Use
  Company Number: US-MYLANLABS-2023M1056251

PATIENT
  Age: 33 Year
  Sex: Female

DRUGS (5)
  1. SOTALOL [Suspect]
     Active Substance: SOTALOL
     Indication: Sinus tachycardia
     Dosage: UNK
     Route: 065
  2. SOTALOL [Suspect]
     Active Substance: SOTALOL
     Dosage: UNK, THE THERAPY WAS STOPPED, AND THEN RESUMED.
     Route: 065
  3. FLECAINIDE [Suspect]
     Active Substance: FLECAINIDE
     Indication: Sinus tachycardia
     Dosage: UNK
     Route: 065
  4. DOFETILIDE [Suspect]
     Active Substance: DOFETILIDE
     Indication: Sinus tachycardia
     Dosage: UNK
     Route: 065
  5. IVABRADINE [Suspect]
     Active Substance: IVABRADINE
     Indication: Sinus tachycardia
     Dosage: UNK
     Route: 065

REACTIONS (1)
  - Drug ineffective [Unknown]
